FAERS Safety Report 7648336-5 (Version None)
Quarter: 2011Q3

REPORT INFORMATION
  Report Type: 
  Country: None (occurrence: None)
  Receive Date: 20110801
  Receipt Date: 20110721
  Transmission Date: 20111222
  Serious: Yes (Other)
  Sender: FDA-Public Use
  Company Number: US-GENZYME-FABR-1001818

PATIENT

DRUGS (8)
  1. FABRAZYME [Suspect]
     Indication: FABRY'S DISEASE
     Dosage: 40 MG, Q2W
     Route: 042
     Dates: start: 20100101
  2. OMEPRAZOLE [Concomitant]
     Indication: GASTROOESOPHAGEAL REFLUX DISEASE
     Dosage: 20 MG, UNK
     Route: 065
  3. NUVIGIL [Concomitant]
     Indication: FATIGUE
     Dosage: 250 MG, UNK
     Route: 065
  4. TRAZODONE HYDROCHLORIDE [Concomitant]
     Indication: INSOMNIA
     Dosage: 100 MG, UNK
     Route: 065
  5. FLUOXETINE [Concomitant]
     Indication: DEPRESSION
     Dosage: 40 MG, UNK
     Route: 065
  6. WELLBUTRIN [Concomitant]
     Indication: DEPRESSION
     Dosage: 150 MG, BID
     Route: 048
  7. PIROXICAM [Concomitant]
     Indication: ARTHRITIS
     Dosage: 20 MG, UNK
     Route: 065
  8. NEURONTIN [Concomitant]
     Indication: NEUROPATHY PERIPHERAL
     Dosage: 300 MG, UNK
     Route: 065

REACTIONS (2)
  - BREAST CANCER [None]
  - BREAST CANCER STAGE II [None]
